FAERS Safety Report 4276593-4 (Version None)
Quarter: 2004Q1

REPORT INFORMATION
  Report Type: 
  Country: None (occurrence: None)
  Receive Date: 20040121
  Receipt Date: 20040115
  Transmission Date: 20041129
  Serious: No
  Sender: FDA-Public Use
  Company Number: WAES 0401USA01048M

PATIENT
  Age: 34 Year
  Sex: Female

DRUGS (5)
  1. ACETAMINOPHEN [Concomitant]
     Dates: start: 20031226, end: 20031227
  2. DIPHENHYDRAMINE HYDROCHLORIDE [Concomitant]
     Route: 048
     Dates: start: 20031123, end: 20040111
  3. IBUPROFEN [Concomitant]
     Dates: start: 20031226, end: 20031227
  4. SINGULAIR [Suspect]
     Route: 048
     Dates: start: 20031123, end: 20040111
  5. PSEUDOEPHEDRINE [Concomitant]
     Dates: start: 20031224, end: 20031231

REACTIONS (4)
  - ABORTION SPONTANEOUS [None]
  - DRUG EXPOSURE DURING PREGNANCY [None]
  - GASTROENTERITIS VIRAL [None]
  - VAGINAL HAEMORRHAGE [None]
